FAERS Safety Report 6964796-7 (Version None)
Quarter: 2010Q3

REPORT INFORMATION
  Report Type: 
  Country: None (occurrence: None)
  Receive Date: 20100903
  Receipt Date: 20100825
  Transmission Date: 20110219
  Serious: Yes (Other)
  Sender: FDA-Public Use
  Company Number: US-PFIZER INC-2010107873

PATIENT
  Sex: Female
  Weight: 90.703 kg

DRUGS (1)
  1. AZULFIDINE [Suspect]
     Indication: COLITIS ULCERATIVE
     Dosage: 1000 MG, 4X/DAY
     Route: 048

REACTIONS (1)
  - CHROMATURIA [None]
